FAERS Safety Report 7255889-8 (Version None)
Quarter: 2011Q1

REPORT INFORMATION
  Report Type: 
  Country: None (occurrence: None)
  Receive Date: 20110129
  Receipt Date: 20100607
  Transmission Date: 20110831
  Serious: No
  Sender: FDA-Public Use
  Company Number: US-ABBOTT-10P-163-0643583-00

PATIENT
  Sex: Female
  Weight: 46.308 kg

DRUGS (2)
  1. HUMIRA [Suspect]
     Dates: start: 20100401, end: 20100401
  2. HUMIRA [Suspect]
     Indication: PSORIASIS
     Dates: start: 20090101, end: 20091101

REACTIONS (9)
  - DRY SKIN [None]
  - LYMPHADENOPATHY [None]
  - SKIN HAEMORRHAGE [None]
  - RASH PAPULAR [None]
  - DRUG DOSE OMISSION [None]
  - PSORIASIS [None]
  - SKIN FISSURES [None]
  - PAIN OF SKIN [None]
  - KIDNEY INFECTION [None]
